FAERS Safety Report 24308294 (Version 3)
Quarter: 2024Q4

REPORT INFORMATION
  Report Type: Spontaneous
  Country: US (occurrence: US)
  Receive Date: 20240911
  Receipt Date: 20241029
  Transmission Date: 20250115
  Serious: No
  Sender: ROCHE
  Company Number: US-ROCHE-10000076375

PATIENT
  Age: 15 Year
  Sex: Male

DRUGS (1)
  1. HEMLIBRA [Suspect]
     Active Substance: EMICIZUMAB-KXWH
     Indication: Prophylaxis
     Route: 058

REACTIONS (3)
  - Injection site haemorrhage [Unknown]
  - Lip injury [Unknown]
  - Injection site mass [Unknown]
